FAERS Safety Report 8254982-0 (Version None)
Quarter: 2012Q1

REPORT INFORMATION
  Report Type: 
  Country: None (occurrence: None)
  Receive Date: 20120320
  Receipt Date: 20120316
  Transmission Date: 20120608
  Serious: Yes (Death)
  Sender: FDA-Public Use
  Company Number: NMS-00034

PATIENT
  Age: 80 Year
  Sex: Female

DRUGS (5)
  1. NITROGLYCERIN [Suspect]
  2. IMDUR [Suspect]
  3. ADCIRCA [Suspect]
  4. LETAIRIS [Suspect]
     Indication: PULMONARY ARTERIAL HYPERTENSION
     Dosage: 10 MG, ORAL
     Route: 048
     Dates: start: 20110401, end: 20120223
  5. TYVASO [Concomitant]

REACTIONS (3)
  - MYOCARDIAL INFARCTION [None]
  - FALL [None]
  - DRUG INTERACTION [None]
